FAERS Safety Report 14483134 (Version 1)
Quarter: 2018Q1

REPORT INFORMATION
  Report Type: Spontaneous
  Country: US (occurrence: US)
  Receive Date: 20180204
  Receipt Date: 20180204
  Transmission Date: 20180509
  Serious: No
  Sender: FDA-Public Use
  Company Number: US-JNJFOC-20180114394

PATIENT
  Age: 86 Year
  Sex: Female
  Weight: 42.64 kg

DRUGS (1)
  1. TYLENOL EXTRA STRENGTH [Suspect]
     Active Substance: ACETAMINOPHEN
     Indication: ARTHRALGIA
     Dosage: 2 CAPLETS 2-3 XDAY
     Route: 048
     Dates: start: 20180106

REACTIONS (2)
  - Blood pressure fluctuation [Not Recovered/Not Resolved]
  - Wrong technique in product usage process [Unknown]
